FAERS Safety Report 4553104-7 (Version None)
Quarter: 2005Q1

REPORT INFORMATION
  Report Type: 
  Country: None (occurrence: None)
  Receive Date: 20050114
  Receipt Date: 20050103
  Transmission Date: 20050727
  Serious: Yes (Other)
  Sender: FDA-Public Use
  Company Number: US-BRISTOL-MYERS SQUIBB COMPANY-12811899

PATIENT
  Age: 44 Year
  Sex: Male
  Weight: 104 kg

DRUGS (5)
  1. ABILIFY [Suspect]
     Indication: OBSESSIVE-COMPULSIVE DISORDER
     Route: 048
     Dates: start: 20040110, end: 20040120
  2. REMERON [Concomitant]
  3. ZOLOFT [Concomitant]
  4. ATIVAN [Concomitant]
  5. KLONOPIN [Concomitant]

REACTIONS (12)
  - DYSTONIA [None]
  - DYSURIA [None]
  - HYPERAESTHESIA [None]
  - HYPOACUSIS [None]
  - HYPOAESTHESIA [None]
  - INSOMNIA [None]
  - MICTURITION URGENCY [None]
  - PARAESTHESIA [None]
  - PREMATURE EJACULATION [None]
  - PRURITUS [None]
  - RESTLESSNESS [None]
  - VISION BLURRED [None]
